FAERS Safety Report 5870819-9 (Version None)
Quarter: 2008Q3

REPORT INFORMATION
  Report Type: 
  Country: None (occurrence: None)
  Receive Date: 20080829
  Receipt Date: 20080617
  Transmission Date: 20090109
  Serious: No
  Sender: FDA-Public Use
  Company Number: US023871

PATIENT
  Sex: Male

DRUGS (3)
  1. FENTORA [Suspect]
     Indication: BREAKTHROUGH PAIN
     Dosage: 600 UG 10 DOSES PER DAY BUCCAL
     Route: 002
  2. FENTORA [Suspect]
     Indication: CANCER PAIN
     Dosage: 600 UG 10 DOSES PER DAY BUCCAL
     Route: 002
  3. DURAGESIC-100 [Concomitant]

REACTIONS (1)
  - DRUG PRESCRIBING ERROR [None]
